FAERS Safety Report 6577917-5 (Version None)
Quarter: 2010Q1

REPORT INFORMATION
  Report Type: 
  Country: None (occurrence: None)
  Receive Date: 20100211
  Receipt Date: 20100128
  Transmission Date: 20100710
  Serious: Yes (Other)
  Sender: FDA-Public Use
  Company Number: US-ROCHE-684439

PATIENT
  Sex: Male

DRUGS (2)
  1. AVASTIN [Suspect]
     Indication: DRUG THERAPY
     Route: 065
  2. FOLFOX REGIMEN [Suspect]
     Indication: DRUG THERAPY
     Dosage: 12 CYCLES COMPLETED.
     Route: 065

REACTIONS (2)
  - HAEMATOTOXICITY [None]
  - NEUROTOXICITY [None]
